FAERS Safety Report 25974035 (Version 1)
Quarter: 2025Q4

REPORT INFORMATION
  Report Type: Spontaneous
  Country: US (occurrence: None)
  Receive Date: 20251028
  Receipt Date: 20251028
  Transmission Date: 20260117
  Serious: Yes (Death)
  Sender: FDA-CTU
  Company Number: None

PATIENT
  Age: 80 Year
  Sex: Male

DRUGS (5)
  1. BUPRENORPHINE [Suspect]
     Active Substance: BUPRENORPHINE
     Indication: Osteomyelitis
     Dosage: 15 MCG
     Route: 061
     Dates: start: 20250806, end: 20250816
  2. BUPRENORPHINE [Suspect]
     Active Substance: BUPRENORPHINE
     Indication: Clostridium difficile infection
  3. MEROPENEM [Suspect]
     Active Substance: MEROPENEM
     Dosage: 15 MCG ?
     Route: 042
     Dates: start: 20250806, end: 20250816
  4. VANCOMYCIN [Suspect]
     Active Substance: VANCOMYCIN
  5. CEFEPIME [Suspect]
     Active Substance: CEFEPIME HYDROCHLORIDE

REACTIONS (8)
  - Haemodialysis [None]
  - Sepsis [None]
  - Unresponsive to stimuli [None]
  - Lethargy [None]
  - Seizure [None]
  - Blood glucose increased [None]
  - End stage renal disease [None]
  - Anaemia [None]

NARRATIVE: CASE EVENT DATE: 20250816
